FAERS Safety Report 24606952 (Version 1)
Quarter: 2024Q4

REPORT INFORMATION
  Report Type: Spontaneous
  Country: US (occurrence: US)
  Receive Date: 20241112
  Receipt Date: 20241112
  Transmission Date: 20250115
  Serious: No
  Sender: ROCHE
  Company Number: US-ROCHE-10000122960

PATIENT
  Age: 80 Year
  Sex: Male

DRUGS (6)
  1. BEVACIZUMAB [Suspect]
     Active Substance: BEVACIZUMAB
     Indication: Neovascular age-related macular degeneration
     Route: 050
  2. SUSVIMO [Concomitant]
     Active Substance: RANIBIZUMAB
  3. SUSVIMO [Concomitant]
     Active Substance: RANIBIZUMAB
  4. SUSVIMO [Concomitant]
     Active Substance: RANIBIZUMAB
  5. SUSVIMO [Concomitant]
     Active Substance: RANIBIZUMAB
  6. SUSVIMO [Concomitant]
     Active Substance: RANIBIZUMAB

REACTIONS (3)
  - Off label use [Unknown]
  - Off label use [Unknown]
  - No adverse event [Unknown]
